FAERS Safety Report 9587467 (Version 1)
Quarter: 2013Q4

REPORT INFORMATION
  Report Type: Spontaneous
  Country: US (occurrence: US)
  Receive Date: 20131003
  Receipt Date: 20131003
  Transmission Date: 20140711
  Serious: No
  Sender: FDA-Public Use
  Company Number: US-PFIZER INC-2013284329

PATIENT
  Age: 57 Year
  Sex: Male
  Weight: 105.67 kg

DRUGS (2)
  1. GABAPENTIN [Suspect]
  2. PHENERGAN [Suspect]

REACTIONS (1)
  - Drug hypersensitivity [Unknown]
